FAERS Safety Report 6005472-7 (Version None)
Quarter: 2008Q4

REPORT INFORMATION
  Report Type: 
  Country: None (occurrence: None)
  Receive Date: 20081217
  Receipt Date: 20081205
  Transmission Date: 20090506
  Serious: Yes (Hospitalization, Other)
  Sender: FDA-Public Use
  Company Number: US-JNJFOC-20081103481

PATIENT
  Sex: Female
  Weight: 53.2 kg

DRUGS (8)
  1. REMICADE [Suspect]
     Route: 042
  2. REMICADE [Suspect]
     Indication: CROHN'S DISEASE
     Dosage: 6 INFUSIONS ON UNKNOWN DATES
     Route: 042
  3. ACETAMINOPHEN [Concomitant]
     Indication: PREMEDICATION
     Route: 048
  4. METHYLPREDNISOLONE 16MG TAB [Concomitant]
     Indication: PREMEDICATION
     Route: 042
  5. MERCAPTOPURINE [Concomitant]
     Indication: CROHN'S DISEASE
  6. PROPOFOL [Concomitant]
     Indication: SEDATION
  7. ALFENTANIL [Concomitant]
     Indication: SEDATION
  8. ASACOL [Concomitant]
     Indication: CROHN'S DISEASE

REACTIONS (10)
  - ACUTE PSYCHOSIS [None]
  - ANAEMIA HAEMOLYTIC AUTOIMMUNE [None]
  - CHOREA [None]
  - COLITIS [None]
  - ENCEPHALOPATHY [None]
  - HALLUCINATION [None]
  - HALLUCINATIONS, MIXED [None]
  - INFUSION RELATED REACTION [None]
  - NEUROPATHY PERIPHERAL [None]
  - SEDATION [None]
